FAERS Safety Report 7986305-6 (Version None)
Quarter: 2011Q4

REPORT INFORMATION
  Report Type: 
  Country: None (occurrence: None)
  Receive Date: 20111216
  Receipt Date: 20110126
  Transmission Date: 20120403
  Serious: No
  Sender: FDA-Public Use
  Company Number: US-BRISTOL-MYERS SQUIBB COMPANY-15512239

PATIENT
  Age: 47 Year
  Sex: Female

DRUGS (3)
  1. PAMELOR [Concomitant]
  2. LAMICTAL [Concomitant]
  3. ABILIFY [Suspect]
     Indication: BIPOLAR DISORDER
     Dosage: DOSE SPLITTED IN HALF AND TAKE 1 MG

REACTIONS (1)
  - WEIGHT INCREASED [None]
